FAERS Safety Report 14661753 (Version 1)
Quarter: 2018Q1

REPORT INFORMATION
  Report Type: Not Available
  Country: US (occurrence: US)
  Receive Date: 20180320
  Receipt Date: 20180320
  Transmission Date: 20180509
  Serious: Yes (Other)
  Sender: FDA-Public Use
  Company Number: US-FOUNDATIONCONSUMERHC-2018-US-004301

PATIENT
  Age: 33 Year
  Sex: Female
  Weight: 67.13 kg

DRUGS (1)
  1. PLAN B ONE-STEP [Suspect]
     Active Substance: LEVONORGESTREL
     Dosage: 1.5 MG
     Route: 048
     Dates: start: 20180313, end: 20180313

REACTIONS (6)
  - Dyspnoea [Unknown]
  - Urticaria [Unknown]
  - Cough [Recovered/Resolved]
  - Wheezing [Unknown]
  - Pruritus [Recovering/Resolving]
  - Hypersensitivity [Unknown]

NARRATIVE: CASE EVENT DATE: 20180313
